FAERS Safety Report 17564822 (Version 1)
Quarter: 2020Q1

REPORT INFORMATION
  Report Type: Spontaneous
  Country: US (occurrence: US)
  Receive Date: 20200320
  Receipt Date: 20200320
  Transmission Date: 20200409
  Serious: No
  Sender: FDA-Public Use
  Company Number: US-SA-2020SA071360

PATIENT
  Sex: Female

DRUGS (1)
  1. LOVENOX [Suspect]
     Active Substance: ENOXAPARIN SODIUM
     Indication: FACTOR V DEFICIENCY
     Dosage: 40 MG, BID
     Route: 065

REACTIONS (2)
  - Injection site bruising [Unknown]
  - Exposure during pregnancy [Unknown]
